FAERS Safety Report 18047181 (Version 1)
Quarter: 2020Q3

REPORT INFORMATION
  Report Type: Spontaneous
  Country: US (occurrence: US)
  Receive Date: 20200720
  Receipt Date: 20200720
  Transmission Date: 20201103
  Serious: Yes (Other)
  Sender: FDA-Public Use
  Company Number: US-009507513-2007USA006417

PATIENT
  Sex: Female

DRUGS (1)
  1. MONTELUKAST SODIUM. [Suspect]
     Active Substance: MONTELUKAST SODIUM
     Indication: SINUSITIS
     Dosage: UNK
     Route: 048

REACTIONS (4)
  - Influenza [Recovered/Resolved]
  - Drug hypersensitivity [Unknown]
  - Asphyxia [Unknown]
  - Rash papular [Unknown]

NARRATIVE: CASE EVENT DATE: 2014
